FAERS Safety Report 5128692-2 (Version None)
Quarter: 2006Q4

REPORT INFORMATION
  Report Type: 
  Country: None (occurrence: None)
  Receive Date: 20061011
  Receipt Date: 20060929
  Transmission Date: 20070319
  Serious: Yes (Other)
  Sender: FDA-Public Use
  Company Number: 230658

PATIENT
  Sex: Male

DRUGS (1)
  1. NUTROPIN  (SUMATROPIN) POWDER FOR INJECTION [Suspect]
     Indication: GROWTH HORMONE DEFICIENCY

REACTIONS (2)
  - BRAIN NEOPLASM [None]
  - NEOPLASM RECURRENCE [None]
